FAERS Safety Report 5533611-0 (Version None)
Quarter: 2007Q4

REPORT INFORMATION
  Report Type: 
  Country: None (occurrence: None)
  Receive Date: 20071129
  Receipt Date: 20071121
  Transmission Date: 20080405
  Serious: Yes (Hospitalization)
  Sender: FDA-Public Use
  Company Number: 2007-03667

PATIENT
  Age: 70 Year
  Sex: Male
  Weight: 97.6 kg

DRUGS (10)
  1. VELCADE [Suspect]
     Indication: MANTLE CELL LYMPHOMA
     Dosage: 1.30  MG/M2
     Dates: start: 20070910, end: 20071025
  2. RITUXIMAB (RITUXIMAB) INJECTION, 375MG/M2 [Suspect]
     Indication: MANTLE CELL LYMPHOMA
     Dosage: 375.00 MG/M2
     Dates: start: 20070910, end: 20071025
  3. CYCLOPHOSPHAMIDE [Suspect]
     Indication: MANTLE CELL LYMPHOMA
     Dosage: 750.00 MG/M2
     Dates: start: 20070910, end: 20071022
  4. ADRIAMYCIN RDF [Suspect]
     Indication: MANTLE CELL LYMPHOMA
     Dosage: 50.00 MG/M2
     Dates: start: 20070910, end: 20071022
  5. VINCRISTINE [Suspect]
     Indication: MANTLE CELL LYMPHOMA
     Dosage: 1.40 MG/M2
     Dates: start: 20070910, end: 20071022
  6. PREDNISONE TAB [Suspect]
     Indication: MANTLE CELL LYMPHOMA
     Dosage: 100.00 MG, ORAL
     Route: 048
     Dates: start: 20070910, end: 20071026
  7. ATIVAN [Concomitant]
  8. AUGMENTIN '125' [Concomitant]
  9. TYLENOL W/ CODEINE NO. 3 [Concomitant]
  10. ZOFRAN (ONDASETRON HDYROCHLORIDE) [Concomitant]

REACTIONS (2)
  - INFECTION [None]
  - PERIRECTAL ABSCESS [None]
